FAERS Safety Report 23654390 (Version 1)
Quarter: 2024Q1

REPORT INFORMATION
  Report Type: Report from Study
  Country: CA (occurrence: CA)
  Receive Date: 20240320
  Receipt Date: 20240320
  Transmission Date: 20240410
  Serious: Yes (Other)
  Sender: FDA-Public Use
  Company Number: CA-ABBVIE-5680180

PATIENT
  Sex: Female

DRUGS (2)
  1. HUMIRA [Suspect]
     Active Substance: ADALIMUMAB
     Indication: Crohn^s disease
     Route: 058
     Dates: start: 20150513, end: 2023
  2. HUMIRA [Suspect]
     Active Substance: ADALIMUMAB
     Route: 058
     Dates: start: 202305

REACTIONS (11)
  - Small intestinal obstruction [Unknown]
  - Intestinal stenosis [Unknown]
  - Diarrhoea [Unknown]
  - Terminal ileitis [Unknown]
  - White blood cell count increased [Recovering/Resolving]
  - Gastrointestinal inflammation [Unknown]
  - Lymphocyte count abnormal [Unknown]
  - Blood test abnormal [Unknown]
  - Faecal calprotectin increased [Unknown]
  - Frequent bowel movements [Unknown]
  - Drug level decreased [Unknown]

NARRATIVE: CASE EVENT DATE: 20230201
